FAERS Safety Report 12365415 (Version 2)
Quarter: 2016Q2

REPORT INFORMATION
  Report Type: Spontaneous
  Country: KR (occurrence: KR)
  Receive Date: 20160512
  Receipt Date: 20160516
  Transmission Date: 20160815
  Serious: Yes (Other)
  Sender: FDA-Public Use
  Company Number: PHHY2016KR064190

PATIENT
  Age: 65 Year
  Sex: Male

DRUGS (6)
  1. PIOGLITAZONE. [Interacting]
     Active Substance: PIOGLITAZONE
     Indication: DIABETES MELLITUS
     Dosage: 30 MG, QD
     Route: 065
  2. METRONIDAZOLE. [Suspect]
     Active Substance: METRONIDAZOLE
     Indication: PRODUCT USED FOR UNKNOWN INDICATION
     Dosage: 1.5 G, QD
     Route: 042
  3. METFORMIN, VILDAGLIPTIN [Interacting]
     Active Substance: METFORMIN\VILDAGLIPTIN
     Indication: DIABETES MELLITUS
     Dosage: VILDAGLIPTIN/METFORMIN 100/2000 MG QD
     Route: 065
  4. CEFOTAXIME [Interacting]
     Active Substance: CEFOTAXIME SODIUM
     Indication: PRODUCT USED FOR UNKNOWN INDICATION
     Dosage: 6 G, QD
     Route: 042
  5. PREGABALIN. [Interacting]
     Active Substance: PREGABALIN
     Indication: PRODUCT USED FOR UNKNOWN INDICATION
     Dosage: 150 MG, QD
     Route: 065
  6. VALSARTAN. [Interacting]
     Active Substance: VALSARTAN
     Indication: HYPERTENSION
     Dosage: 80 MG, QD
     Route: 065

REACTIONS (8)
  - Nystagmus [Unknown]
  - Vomiting [Unknown]
  - Balance disorder [Unknown]
  - Nervous system disorder [Unknown]
  - Drug interaction [Unknown]
  - Dizziness [Unknown]
  - Ataxia [Unknown]
  - Vestibular disorder [Unknown]
